FAERS Safety Report 7022437-7 (Version None)
Quarter: 2010Q3

REPORT INFORMATION
  Report Type: 
  Country: None (occurrence: None)
  Receive Date: 20100930
  Receipt Date: 20100920
  Transmission Date: 20110219
  Serious: Yes (Death, Other)
  Sender: FDA-Public Use
  Company Number: GB-ROCHE-728854

PATIENT
  Sex: Female

DRUGS (2)
  1. VALIUM [Suspect]
     Indication: PRODUCT USED FOR UNKNOWN INDICATION
     Dosage: DOSE, ROUTE, FREQUENCY:NOT PROVIDED
     Route: 065
     Dates: start: 19600101
  2. LIBRIUM [Suspect]
     Indication: PRODUCT USED FOR UNKNOWN INDICATION
     Dosage: DOSE, ROUTE, FREQUENCY: NOT PROVIDED
     Route: 065
     Dates: start: 19600101

REACTIONS (7)
  - AMNESIA [None]
  - COMA [None]
  - DEATH [None]
  - DEPRESSED LEVEL OF CONSCIOUSNESS [None]
  - FEAR OF OPEN SPACES [None]
  - PANIC DISORDER [None]
  - THINKING ABNORMAL [None]
